FAERS Safety Report 25260221 (Version 1)
Quarter: 2025Q2

REPORT INFORMATION
  Report Type: Spontaneous
  Country: US (occurrence: None)
  Receive Date: 20250501
  Receipt Date: 20250501
  Transmission Date: 20250717
  Serious: Yes (Hospitalization)
  Sender: FDA-CTU
  Company Number: None

PATIENT
  Age: 84 Year
  Sex: Male

DRUGS (3)
  1. APIXABAN [Suspect]
     Active Substance: APIXABAN
     Indication: Atrial fibrillation
  2. ASPIRIN [Suspect]
     Active Substance: ASPIRIN
  3. TROSPIUM [Suspect]
     Active Substance: TROSPIUM

REACTIONS (6)
  - Haemorrhage [None]
  - Anaemia [None]
  - Haematuria [None]
  - Shock [None]
  - Therapy interrupted [None]
  - Red blood cell transfusion [None]

NARRATIVE: CASE EVENT DATE: 20250418
